FAERS Safety Report 8774825 (Version 1)
Quarter: 2012Q4

REPORT INFORMATION
  Report Type: 
  Country: US (occurrence: US)
  Receive Date: 20120910
  Receipt Date: 20120910
  Transmission Date: 20130627
  Serious: No
  Sender: FDA-Public Use
  Company Number: US-009507513-1207USA006970

PATIENT

DRUGS (1)
  1. IMPLANON [Suspect]
     Indication: CONTRACEPTION
     Dosage: UNK
     Route: 059
     Dates: start: 201203

REACTIONS (3)
  - Muscle rigidity [Not Recovered/Not Resolved]
  - Implant site swelling [Recovered/Resolved]
  - Implant site pain [Recovered/Resolved]
